FAERS Safety Report 11879829 (Version 4)
Quarter: 2016Q2

REPORT INFORMATION
  Report Type: Spontaneous
  Country: US (occurrence: US)
  Receive Date: 20151230
  Receipt Date: 20160427
  Transmission Date: 20160815
  Serious: Yes (Hospitalization, Other)
  Sender: FDA-Public Use
  Company Number: US-BAXTER-2015BAX070542

PATIENT
  Age: 71 Year
  Sex: Male

DRUGS (1)
  1. DIANEAL LOW CALCIUM PERITONEAL DIALYSIS SOLUTION WITH DEXTROSE [Suspect]
     Active Substance: CALCIUM CHLORIDE\DEXTROSE\MAGNESIUM CHLORIDE\SODIUM CHLORIDE\SODIUM LACTATE
     Indication: PERITONEAL DIALYSIS
     Route: 033

REACTIONS (15)
  - Visual impairment [Unknown]
  - Motor dysfunction [Unknown]
  - Brain oedema [Unknown]
  - Infection [Unknown]
  - Coma [Unknown]
  - Sepsis [Unknown]
  - Renal cancer [Unknown]
  - Diarrhoea [Unknown]
  - Cerebrospinal fluid circulation disorder [Unknown]
  - Aneurysm [Unknown]
  - Pyrexia [Unknown]
  - Malaise [Unknown]
  - Vomiting [Unknown]
  - Blood glucose abnormal [Unknown]
  - Malignant hypertension [Unknown]

NARRATIVE: CASE EVENT DATE: 201510
